FAERS Safety Report 13214562 (Version 1)
Quarter: 2017Q1

REPORT INFORMATION
  Report Type: Spontaneous
  Country: NO (occurrence: NO)
  Receive Date: 20170210
  Receipt Date: 20170210
  Transmission Date: 20170428
  Serious: Yes (Death)
  Sender: FDA-Public Use
  Company Number: NO-SA-2017SA022860

PATIENT
  Age: 86 Year
  Sex: Female

DRUGS (2)
  1. PLAVIX [Suspect]
     Active Substance: CLOPIDOGREL BISULFATE
     Indication: AORTIC VALVE STENOSIS
     Route: 048
     Dates: start: 2012, end: 2016
  2. ACETYLSALICYLIC ACID [Interacting]
     Active Substance: ASPIRIN
     Route: 065
     Dates: start: 2012

REACTIONS (2)
  - Drug interaction [Unknown]
  - Cerebral haemorrhage [Fatal]
